FAERS Safety Report 8000164-7 (Version None)
Quarter: 2011Q4

REPORT INFORMATION
  Report Type: 
  Country: None (occurrence: None)
  Receive Date: 20111220
  Receipt Date: 20111220
  Transmission Date: 20120403
  Serious: Yes (Hospitalization)
  Sender: FDA-Public Use
  Company Number: None

PATIENT
  Sex: Male
  Weight: 90.18 kg

DRUGS (18)
  1. LORAZEPAM [Concomitant]
  2. PROCHLORPERAZINE [Concomitant]
  3. SIMETHICONE [Concomitant]
  4. ASPIRIN [Concomitant]
  5. IRBESARTAN [Concomitant]
  6. NITROGLYCERIN [Concomitant]
  7. FLUOROURACIL [Suspect]
     Dosage: 825 MG
     Dates: end: 20111129
  8. AMLODIPINE [Concomitant]
  9. ATORVASTATIN [Concomitant]
  10. MAGNESIUM HYDROXIDE TAB [Concomitant]
  11. LEUCOVORIN CALCIUM [Suspect]
     Dosage: 825 MG
     Dates: end: 20111129
  12. MULTIPLE VITAMIN [Concomitant]
  13. CARVEDILOL [Concomitant]
  14. COENZYME [Concomitant]
  15. PROMETHAZINE [Concomitant]
  16. BEVACIZUMAB (RHUMAB VEOF) [Suspect]
     Dosage: 450 MG
     Dates: end: 20111129
  17. IRINOTECAN HCL [Suspect]
     Dosage: 370 MG
     Dates: end: 20111129
  18. CHOLECALCIFEROL [Concomitant]

REACTIONS (7)
  - DIARRHOEA [None]
  - FATIGUE [None]
  - NEUTROPENIA [None]
  - DEHYDRATION [None]
  - SYNCOPE [None]
  - LEUKOPENIA [None]
  - DIZZINESS [None]
